FAERS Safety Report 7966561-0 (Version None)
Quarter: 2011Q4

REPORT INFORMATION
  Report Type: 
  Country: None (occurrence: None)
  Receive Date: 20111208
  Receipt Date: 20071115
  Transmission Date: 20120403
  Serious: Yes (Other)
  Sender: FDA-Public Use
  Company Number: PHHY2007MX011427

PATIENT
  Sex: Female

DRUGS (1)
  1. DIOVAN HCT [Suspect]
     Indication: HYPERTENSION
     Dosage: 1 DF, UNK, 160/12.5 MG
     Route: 048
     Dates: start: 20041001

REACTIONS (2)
  - CARDIOMEGALY [None]
  - PERIPHERAL VASCULAR DISORDER [None]
